FAERS Safety Report 9241261 (Version 2)
Quarter: 2013Q2

REPORT INFORMATION
  Report Type: Spontaneous
  Country: US (occurrence: US)
  Receive Date: 20130419
  Receipt Date: 20130508
  Transmission Date: 20140414
  Serious: Yes (Hospitalization)
  Sender: FDA-Public Use
  Company Number: US-BIOGENIDEC-2013BI033997

PATIENT
  Age: 61 Year
  Sex: Female

DRUGS (1)
  1. TYSABRI [Suspect]
     Indication: MULTIPLE SCLEROSIS
     Route: 042
     Dates: start: 20120823

REACTIONS (7)
  - Viral infection [Unknown]
  - Pyrexia [Unknown]
  - Hypertension [Unknown]
  - Headache [Unknown]
  - Abdominal discomfort [Unknown]
  - Weight decreased [Unknown]
  - Adverse drug reaction [Unknown]
